FAERS Safety Report 20107112 (Version 1)
Quarter: 2021Q4

REPORT INFORMATION
  Report Type: Spontaneous
  Country: FR (occurrence: FR)
  Receive Date: 20211124
  Receipt Date: 20211124
  Transmission Date: 20220303
  Serious: Yes (Other)
  Sender: FDA-Public Use
  Company Number: FR-AstraZeneca-2021A733649

PATIENT
  Age: 51 Year
  Sex: Female

DRUGS (3)
  1. TAMOXIFEN [Suspect]
     Active Substance: TAMOXIFEN
     Indication: Invasive ductal breast carcinoma
     Dosage: UNK
     Route: 048
     Dates: start: 2012, end: 201703
  2. DOCETAXEL [Concomitant]
     Active Substance: DOCETAXEL
     Dosage: UNK
  3. CYCLOPHOSPHAMIDE\EPIRUBICIN HYDROCHLORIDE\FLUOROURACIL [Concomitant]
     Active Substance: CYCLOPHOSPHAMIDE\EPIRUBICIN HYDROCHLORIDE\FLUOROURACIL
     Dosage: UNK

REACTIONS (4)
  - Metastases to bone [Recovering/Resolving]
  - Metastases to liver [Recovering/Resolving]
  - Spinal pain [Unknown]
  - Malignant neoplasm progression [Recovering/Resolving]

NARRATIVE: CASE EVENT DATE: 20181201
